FAERS Safety Report 9248395 (Version 1)
Quarter: 2013Q1

REPORT INFORMATION
  Report Type: Spontaneous
  Country: US (occurrence: None)
  Receive Date: 20130305
  Receipt Date: 20130305
  Transmission Date: 20140127
  Serious: Yes (Other)
  Sender: FDA-Public Use
  Company Number: 163-21880-12092099

PATIENT
  Age: 88 Year
  Sex: Male
  Weight: 86.64 kg

DRUGS (3)
  1. REVLIMID [Suspect]
     Indication: PLASMA CELL MYELOMA
     Dosage: 10 MG, 1 IN 1 D, PO
     Dates: start: 20100518
  2. DEXAMETHASONE (DEXAMETHASONE) [Concomitant]
  3. VITAMINS [Concomitant]

REACTIONS (1)
  - Hypothyroidism [None]
